FAERS Safety Report 8761887 (Version 2)
Quarter: 2012Q4

REPORT INFORMATION
  Report Type: 
  Country: US (occurrence: US)
  Receive Date: 20120828
  Receipt Date: 20121011
  Transmission Date: 20130627
  Serious: Yes (Other)
  Sender: FDA-Public Use
  Company Number: US-PFIZER INC-2012210406

PATIENT

DRUGS (3)
  1. PRISTIQ [Suspect]
     Dosage: UNK
  2. LEXAPRO [Concomitant]
     Dosage: 20 mg, UNK
  3. CELEXA [Concomitant]
     Dosage: 40 mg, UNK

REACTIONS (1)
  - Endotracheal intubation [Unknown]
